FAERS Safety Report 7694443-0 (Version None)
Quarter: 2011Q3

REPORT INFORMATION
  Report Type: 
  Country: None (occurrence: None)
  Receive Date: 20110819
  Receipt Date: 20110805
  Transmission Date: 20111222
  Serious: Yes (Hospitalization, Other)
  Sender: FDA-Public Use
  Company Number: PHHY2011JP73637

PATIENT

DRUGS (2)
  1. ANGIOTENSIN II [Suspect]
  2. RASILEZ [Suspect]
     Dosage: UNK

REACTIONS (1)
  - RENAL FAILURE ACUTE [None]
